FAERS Safety Report 9933404 (Version 2)
Quarter: 2014Q1

REPORT INFORMATION
  Report Type: Report from Study
  Country: US (occurrence: US)
  Receive Date: 20140228
  Receipt Date: 20140228
  Transmission Date: 20141002
  Serious: No
  Sender: FDA-Public Use
  Company Number: US-MYLANLABS-2013S1008343

PATIENT
  Age: 22 Year
  Sex: Female

DRUGS (2)
  1. AMNESTEEM CAPSULES [Suspect]
     Indication: ACNE
  2. AMNESTEEM CAPSULES [Suspect]
     Indication: ACNE

REACTIONS (3)
  - Constipation [Unknown]
  - Upper respiratory tract infection [Unknown]
  - Allergic sinusitis [Not Recovered/Not Resolved]
